FAERS Safety Report 6007469-X (Version None)
Quarter: 2008Q4

REPORT INFORMATION
  Report Type: 
  Country: None (occurrence: None)
  Receive Date: 20081217
  Receipt Date: 20080425
  Transmission Date: 20090506
  Serious: No
  Sender: FDA-Public Use
  Company Number: US-ASTRAZENECA-2008UW08445

PATIENT
  Age: 70 Year
  Sex: Female
  Weight: 112.5 kg

DRUGS (9)
  1. CRESTOR [Suspect]
     Indication: BLOOD CHOLESTEROL INCREASED
     Route: 048
     Dates: start: 20080418
  2. TENORMIN [Concomitant]
  3. CARDIZEM CD [Concomitant]
  4. DIOVAN [Concomitant]
  5. METHYLDOPA [Concomitant]
  6. TRANXENE [Concomitant]
  7. GLUCOTROL XL [Concomitant]
  8. POTASSIUM CHLORIDE [Concomitant]
  9. LASIX [Concomitant]

REACTIONS (2)
  - BLOOD GLUCOSE INCREASED [None]
  - HEADACHE [None]
